FAERS Safety Report 10507000 (Version 1)
Quarter: 2014Q4

REPORT INFORMATION
  Report Type: Spontaneous
  Country: US (occurrence: None)
  Receive Date: 20141007
  Receipt Date: 20141007
  Transmission Date: 20150528
  Serious: Yes (Other)
  Sender: FDA-Public Use
  Company Number: 2014-00084

PATIENT
  Age: 65 Year
  Sex: Female
  Weight: 49.9 kg

DRUGS (1)
  1. ZICAM COLD REMEDY RAPIDMELTS WITH ECHINACEA [Suspect]
     Active Substance: ECHINACEA ANGUSTIFOLIA\ZINC ACETATE ANHYDROUS\ZINC GLUCONATE
     Indication: NASOPHARYNGITIS
     Dosage: 3 RAPIDMELTS BY MOUTH DAILY
     Dates: end: 20140901

REACTIONS (2)
  - Heart rate increased [None]
  - Thyroid function test abnormal [None]

NARRATIVE: CASE EVENT DATE: 20140827
